FAERS Safety Report 6426339-6 (Version None)
Quarter: 2009Q4

REPORT INFORMATION
  Report Type: 
  Country: None (occurrence: None)
  Receive Date: 20091104
  Receipt Date: 20091026
  Transmission Date: 20100525
  Serious: Yes (Other)
  Sender: FDA-Public Use
  Company Number: US-JNJFOC-20091008741

PATIENT
  Sex: Female
  Weight: 81.65 kg

DRUGS (3)
  1. DURAGESIC-100 [Suspect]
     Route: 062
     Dates: end: 20091001
  2. DURAGESIC-100 [Suspect]
     Indication: BACK PAIN
     Route: 062
     Dates: end: 20091001
  3. TALWIN NOS [Concomitant]
     Indication: PAIN
     Route: 048

REACTIONS (2)
  - GASTRIC ULCER [None]
  - INAPPROPRIATE SCHEDULE OF DRUG ADMINISTRATION [None]
